FAERS Safety Report 6596007-9 (Version None)
Quarter: 2010Q1

REPORT INFORMATION
  Report Type: 
  Country: None (occurrence: None)
  Receive Date: 20100223
  Receipt Date: 20100212
  Transmission Date: 20100710
  Serious: Yes (Other)
  Sender: FDA-Public Use
  Company Number: PHFR2008GB00898

PATIENT
  Sex: Male

DRUGS (5)
  1. CLOZARIL [Suspect]
     Indication: SCHIZOPHRENIA
     Dosage: 450 MG, QD
     Route: 048
     Dates: start: 20070816
  2. CLOZARIL [Suspect]
     Dosage: 500 MG, QD
     Route: 048
  3. CLOZARIL [Suspect]
     Dosage: 475 MG, QD
     Route: 048
  4. CLOZARIL [Suspect]
     Dosage: 350 MG, QD
  5. CAFFEINE [Concomitant]

REACTIONS (4)
  - ANTIPSYCHOTIC DRUG LEVEL INCREASED [None]
  - CONSTIPATION [None]
  - CONVULSION [None]
  - MENTAL DISORDER [None]
